FAERS Safety Report 6948713-1 (Version None)
Quarter: 2010Q3

REPORT INFORMATION
  Report Type: 
  Country: None (occurrence: None)
  Receive Date: 20100828
  Receipt Date: 20091111
  Transmission Date: 20110219
  Serious: No
  Sender: FDA-Public Use
  Company Number: US-ABBOTT-09P-163-0608160-00

PATIENT
  Sex: Female
  Weight: 68.1 kg

DRUGS (2)
  1. NIASPAN [Suspect]
     Indication: HYPERCHOLESTEROLAEMIA
     Dosage: AT BEDTIME
     Dates: start: 20091106, end: 20091109
  2. ASPIRIN [Concomitant]
     Indication: PRODUCT USED FOR UNKNOWN INDICATION
     Route: 048

REACTIONS (6)
  - COLD SWEAT [None]
  - DIZZINESS [None]
  - FEELING ABNORMAL [None]
  - HEADACHE [None]
  - HYPERHIDROSIS [None]
  - NAUSEA [None]
